FAERS Safety Report 5471919-8 (Version None)
Quarter: 2007Q3

REPORT INFORMATION
  Report Type: 
  Country: None (occurrence: None)
  Receive Date: 20070928
  Receipt Date: 20070917
  Transmission Date: 20080115
  Serious: Yes (Other)
  Sender: FDA-Public Use
  Company Number: US-PFIZER INC-2007061293

PATIENT
  Sex: Female
  Weight: 50.909 kg

DRUGS (11)
  1. LYRICA [Suspect]
     Indication: NEURALGIA
  2. LYRICA [Suspect]
     Indication: RADICULAR PAIN
  3. LYRICA [Suspect]
  4. PROZAC [Concomitant]
  5. SYNTHROID [Concomitant]
     Indication: HYPOTHYROIDISM
  6. FENTANYL [Concomitant]
     Indication: PAIN
     Route: 062
  7. DILAUDID [Concomitant]
  8. THYROID HORMONES [Concomitant]
  9. FENTANYL [Concomitant]
  10. LIDODERM [Concomitant]
  11. HYDROCHLOROTHIAZIDE [Concomitant]

REACTIONS (14)
  - ACTIVITIES OF DAILY LIVING IMPAIRED [None]
  - ASTHENIA [None]
  - BLOOD THYROID STIMULATING HORMONE DECREASED [None]
  - BLOOD THYROID STIMULATING HORMONE INCREASED [None]
  - DEAFNESS [None]
  - DYSKINESIA [None]
  - GAIT DISTURBANCE [None]
  - INSOMNIA [None]
  - MALAISE [None]
  - OEDEMA PERIPHERAL [None]
  - SOMNOLENCE [None]
  - SPEECH DISORDER [None]
  - TREMOR [None]
  - WEIGHT DECREASED [None]
